FAERS Safety Report 9179039 (Version 3)
Quarter: 2013Q2

REPORT INFORMATION
  Report Type: Spontaneous
  Country: DE (occurrence: CA)
  Receive Date: 20130321
  Receipt Date: 20130626
  Transmission Date: 20140414
  Serious: Yes (Death, Hospitalization)
  Sender: FDA-Public Use
  Company Number: CA-FRI-1000043598

PATIENT
  Sex: Male

DRUGS (2)
  1. ROFLUMILAST [Suspect]
     Indication: CHRONIC OBSTRUCTIVE PULMONARY DISEASE
     Dosage: 500 MCG
     Route: 048
     Dates: start: 20120929
  2. ROFLUMILAST [Suspect]
     Dosage: 250 MCG
     Route: 048

REACTIONS (6)
  - Death [Fatal]
  - Anaemia [Unknown]
  - Device related infection [Unknown]
  - Cough [Unknown]
  - Diarrhoea [Unknown]
  - Medication error [Unknown]
